APPROVED DRUG PRODUCT: PIROXICAM
Active Ingredient: PIROXICAM
Strength: 20MG
Dosage Form/Route: CAPSULE;ORAL
Application: A206136 | Product #002
Applicant: STRIDES PHARMA GLOBAL PTE LTD
Approved: Jun 20, 2017 | RLD: No | RS: No | Type: DISCN